FAERS Safety Report 7306382-5 (Version None)
Quarter: 2011Q1

REPORT INFORMATION
  Report Type: 
  Country: None (occurrence: None)
  Receive Date: 20110222
  Receipt Date: 20110214
  Transmission Date: 20110831
  Serious: Yes (Death, Hospitalization, Disabling, Other)
  Sender: FDA-Public Use
  Company Number: JP-JNJFOC-20100402777

PATIENT
  Sex: Female
  Weight: 50 kg

DRUGS (14)
  1. ADONA [Concomitant]
     Route: 048
  2. TRANEXAMIC ACID [Concomitant]
     Route: 048
  3. FERROUS CITRATE [Concomitant]
     Route: 048
  4. CEFMETAZOLE SODIUM [Concomitant]
     Indication: SEPSIS
     Route: 042
  5. ZOSYN [Concomitant]
     Indication: SEPSIS
     Route: 042
  6. MAGMITT [Concomitant]
     Route: 048
  7. DAI-KENCHU-TO [Concomitant]
     Route: 048
  8. DUROTEP MT [Concomitant]
     Route: 062
  9. KENEI [Concomitant]
     Route: 054
  10. SLOW-K [Concomitant]
     Indication: ILEUS PARALYTIC
     Route: 048
  11. TAMIFLU [Concomitant]
     Indication: PROPHYLAXIS
     Route: 048
  12. DOXORUBICIN HYDROCHLORIDE [Suspect]
     Indication: OVARIAN CANCER
     Route: 042
  13. DOXORUBICIN HYDROCHLORIDE [Suspect]
     Route: 042
  14. LOXOPROFEN [Concomitant]
     Route: 048

REACTIONS (6)
  - SEPSIS [None]
  - DEATH [None]
  - ILEUS PARALYTIC [None]
  - PYELONEPHRITIS [None]
  - CANCER PAIN [None]
  - FEMALE GENITAL TRACT FISTULA [None]
